FAERS Safety Report 24253192 (Version 2)
Quarter: 2024Q3

REPORT INFORMATION
  Report Type: Spontaneous
  Country: US (occurrence: US)
  Receive Date: 20240827
  Receipt Date: 20240829
  Transmission Date: 20241016
  Serious: No
  Sender: AMGEN
  Company Number: US-AMGEN-USASP2024167709

PATIENT
  Sex: Female

DRUGS (1)
  1. AVSOLA [Suspect]
     Active Substance: INFLIXIMAB-AXXQ
     Indication: Proctitis ulcerative
     Dosage: UNK
     Route: 042
     Dates: start: 20240723

REACTIONS (7)
  - Increased tendency to bruise [Unknown]
  - Skin discolouration [Unknown]
  - Nasal congestion [Unknown]
  - Injection site bruising [Unknown]
  - Injection site pain [Unknown]
  - Insomnia [Unknown]
  - Hypersensitivity [Not Recovered/Not Resolved]

NARRATIVE: CASE EVENT DATE: 20240723
